FAERS Safety Report 25333503 (Version 2)
Quarter: 2025Q2

REPORT INFORMATION
  Report Type: Report from Study
  Country: KR (occurrence: KR)
  Receive Date: 20250520
  Receipt Date: 20250602
  Transmission Date: 20250716
  Serious: Yes (Death)
  Sender: ABBVIE
  Company Number: KR-PFIZER INC-PV202500058692

PATIENT
  Age: 81 Year
  Sex: Male
  Weight: 44.3 kg

DRUGS (19)
  1. AVIBACTAM SODIUM\CEFTAZIDIME [Suspect]
     Active Substance: AVIBACTAM SODIUM\CEFTAZIDIME
     Indication: Urinary tract infection
     Route: 042
     Dates: start: 20250509, end: 20250510
  2. AVIBACTAM SODIUM\CEFTAZIDIME [Suspect]
     Active Substance: AVIBACTAM SODIUM\CEFTAZIDIME
     Indication: Urinary tract infection
     Route: 042
     Dates: start: 20250508, end: 20250508
  3. AVIBACTAM SODIUM\CEFTAZIDIME [Suspect]
     Active Substance: AVIBACTAM SODIUM\CEFTAZIDIME
     Indication: Urinary tract infection
     Route: 042
     Dates: start: 20250511, end: 20250513
  4. Tazoperan [Concomitant]
     Indication: Antibiotic therapy
     Route: 042
     Dates: start: 20250506, end: 20250507
  5. Hinechol [Concomitant]
     Indication: Benign prostatic hyperplasia
     Route: 048
     Dates: start: 20250507, end: 20250513
  6. LASIX [Concomitant]
     Active Substance: FUROSEMIDE
     Indication: Hypervolaemia
     Route: 042
     Dates: start: 20250511, end: 20250513
  7. ACETYLCYSTEINE [Concomitant]
     Active Substance: ACETYLCYSTEINE
     Indication: Productive cough
     Route: 048
     Dates: start: 20250506, end: 20250513
  8. Tapocin [Concomitant]
     Indication: Infection
     Route: 042
     Dates: start: 20250507, end: 20250513
  9. CHOLINE ALFOSCERATE [Concomitant]
     Active Substance: CHOLINE ALFOSCERATE
     Indication: Dementia
     Route: 048
     Dates: start: 20250507, end: 20250513
  10. HERBALS [Concomitant]
     Active Substance: HERBALS
     Indication: Gastrointestinal disorder
     Route: 048
     Dates: start: 20250507, end: 20250513
  11. Mago [Concomitant]
     Indication: Antacid therapy
     Route: 042
     Dates: start: 20250512, end: 20250513
  12. SULFAMETHOXAZOLE\TRIMETHOPRIM [Concomitant]
     Active Substance: SULFAMETHOXAZOLE\TRIMETHOPRIM
     Indication: Infection
     Route: 048
     Dates: start: 20250512, end: 20250513
  13. HEPARIN SODIUM [Concomitant]
     Active Substance: HEPARIN SODIUM
     Indication: Thrombosis prophylaxis
     Route: 042
     Dates: start: 20250505, end: 20250511
  14. K contin [Concomitant]
     Indication: Hypokalaemia
     Route: 048
     Dates: start: 20250505, end: 20250505
  15. Q phrine [Concomitant]
     Indication: Hypotension
     Route: 042
     Dates: start: 20250505
  16. Ramnos [Concomitant]
     Indication: Diarrhoea
     Route: 048
     Dates: start: 20250507, end: 20250513
  17. PANTOPRAZOLE SODIUM [Concomitant]
     Active Substance: PANTOPRAZOLE SODIUM
     Indication: Peptic ulcer
     Route: 042
     Dates: start: 20250505
  18. TAMSULOSIN HYDROCHLORIDE [Concomitant]
     Active Substance: TAMSULOSIN HYDROCHLORIDE
     Indication: Benign prostatic hyperplasia
     Route: 048
     Dates: start: 20250507, end: 20250513
  19. POTASSIUM CHLORIDE [Concomitant]
     Active Substance: POTASSIUM CHLORIDE
     Indication: Hypokalaemia
     Route: 042
     Dates: start: 20250506, end: 20250511

REACTIONS (1)
  - Septic shock [Fatal]

NARRATIVE: CASE EVENT DATE: 20250514
